FAERS Safety Report 4980476-1 (Version None)
Quarter: 2006Q2

REPORT INFORMATION
  Report Type: 
  Country: None (occurrence: None)
  Receive Date: 20060424
  Receipt Date: 20060413
  Transmission Date: 20061013
  Serious: Yes (Other)
  Sender: FDA-Public Use
  Company Number: AU-SANOFI-SYNTHELABO-A01200602829

PATIENT
  Sex: Male

DRUGS (1)
  1. STILNOX [Suspect]
     Indication: INSOMNIA
     Dosage: 10 MG
     Route: 048

REACTIONS (4)
  - ABNORMAL BEHAVIOUR [None]
  - DISTURBANCE IN ATTENTION [None]
  - MIDDLE INSOMNIA [None]
  - SUICIDE ATTEMPT [None]
